FAERS Safety Report 6585438-9 (Version None)
Quarter: 2010Q1

REPORT INFORMATION
  Report Type: 
  Country: None (occurrence: None)
  Receive Date: 20100217
  Receipt Date: 20100208
  Transmission Date: 20100710
  Serious: Yes (Other)
  Sender: FDA-Public Use
  Company Number: B0633185A

PATIENT

DRUGS (1)
  1. PAXIL [Suspect]
     Indication: SOMATOFORM DISORDER
     Route: 048

REACTIONS (2)
  - HALLUCINATION [None]
  - PARANOIA [None]
